FAERS Safety Report 5775554-3 (Version None)
Quarter: 2008Q2

REPORT INFORMATION
  Report Type: 
  Country: None (occurrence: None)
  Receive Date: 20080612
  Receipt Date: 20080528
  Transmission Date: 20081010
  Serious: Yes (Hospitalization, Disabling)
  Sender: FDA-Public Use
  Company Number: S08-FRA-02025-01

PATIENT
  Age: 85 Year
  Sex: Male

DRUGS (14)
  1. CITALOPRAM HYDROBROMIDE [Suspect]
     Dosage: 1 UNK QD PO
     Route: 048
  2. LOVENOX [Suspect]
     Indication: PHLEBITIS SUPERFICIAL
     Dosage: 0.3 ML BID SC
     Route: 058
     Dates: end: 20080331
  3. KARDEGIC (ACETYLSALICYLICATE LYSINE) [Suspect]
     Dosage: 75 MG QD PO
     Route: 048
  4. ADANCOR (NICORANDIL) [Concomitant]
  5. CASODEX [Concomitant]
  6. FERROUS SULFATE TAB [Concomitant]
  7. AMIODARONE HCL [Concomitant]
  8. OMEPRAZOLE [Concomitant]
  9. POTASSIUM CHLORIDE [Concomitant]
  10. MOVICOL [Concomitant]
  11. IMOVANE (ZOPICLONE) [Concomitant]
  12. EQUANIL [Concomitant]
  13. RISPERDAL [Concomitant]
  14. NITROGLYCERIN [Concomitant]

REACTIONS (4)
  - DRUG INTERACTION [None]
  - FALL [None]
  - HAEMATOMA [None]
  - PHLEBITIS SUPERFICIAL [None]
